FAERS Safety Report 16072531 (Version 2)
Quarter: 2019Q1

REPORT INFORMATION
  Report Type: Spontaneous
  Country: JP (occurrence: JP)
  Receive Date: 20190314
  Receipt Date: 20190326
  Transmission Date: 20190418
  Serious: Yes (Other)
  Sender: FDA-Public Use
  Company Number: JP-PFIZER INC-2019110186

PATIENT
  Age: 80 Year
  Sex: Male

DRUGS (2)
  1. ANCARON [Suspect]
     Active Substance: AMIODARONE HYDROCHLORIDE
     Dosage: UNK
     Route: 065
  2. THIAMAZOLE [Suspect]
     Active Substance: METHIMAZOLE
     Dosage: UNK
     Route: 065

REACTIONS (2)
  - Polyarteritis nodosa [Unknown]
  - Intestinal ulcer perforation [Recovered/Resolved]
